FAERS Safety Report 5690891-9 (Version None)
Quarter: 2008Q2

REPORT INFORMATION
  Report Type: 
  Country: None (occurrence: None)
  Receive Date: 20080401
  Receipt Date: 20080325
  Transmission Date: 20081010
  Serious: Yes (Hospitalization)
  Sender: FDA-Public Use
  Company Number: US-AVENTIS-200812719GDDC

PATIENT
  Age: 65 Year
  Sex: Male
  Weight: 78.4 kg

DRUGS (4)
  1. TAXOTERE [Suspect]
     Indication: PROSTATE CANCER
     Route: 042
     Dates: start: 20080311, end: 20080311
  2. PREDNISONE [Suspect]
     Indication: PROSTATE CANCER
     Route: 048
     Dates: start: 20080311
  3. PREDNISONE [Suspect]
     Route: 048
  4. ZOLADEX [Concomitant]

REACTIONS (3)
  - EUPHORIC MOOD [None]
  - INSOMNIA [None]
  - PNEUMONIA [None]
